FAERS Safety Report 5877466-3 (Version None)
Quarter: 2008Q3

REPORT INFORMATION
  Report Type: 
  Country: None (occurrence: None)
  Receive Date: 20080909
  Receipt Date: 20080825
  Transmission Date: 20090109
  Serious: Yes (Hospitalization, Other)
  Sender: FDA-Public Use
  Company Number: 2008S1014217

PATIENT
  Age: 77 Year
  Sex: Female
  Weight: 68.0396 kg

DRUGS (7)
  1. BYSTOLIC [Suspect]
     Indication: HYPERTENSION
     Dosage: 2.5 MG; AT BEDTIME; ORAL
     Route: 048
     Dates: start: 20080630, end: 20080705
  2. BYSTOLIC [Suspect]
     Indication: TACHYCARDIA
     Dosage: 2.5 MG; AT BEDTIME; ORAL
     Route: 048
     Dates: start: 20080630, end: 20080705
  3. HYDRALAZINE HCL [Concomitant]
  4. DIOVAN /01319601/ [Concomitant]
  5. SEROQUEL [Concomitant]
  6. NEXIUM [Concomitant]
  7. POTASSIUM CHLORIDE [Concomitant]

REACTIONS (3)
  - HYPOTENSION [None]
  - LETHARGY [None]
  - VOMITING [None]
